FAERS Safety Report 18605877 (Version 1)
Quarter: 2020Q4

REPORT INFORMATION
  Report Type: Spontaneous
  Country: US (occurrence: US)
  Receive Date: 20201211
  Receipt Date: 20201211
  Transmission Date: 20210114
  Serious: Yes (Other)
  Sender: FDA-Public Use
  Company Number: US-BAYER-2020-271556

PATIENT
  Age: 38 Year
  Sex: Male

DRUGS (2)
  1. KOGENATE FS [Suspect]
     Active Substance: ANTIHEMOPHILIC FACTOR, HUMAN RECOMBINANT
     Dosage: 6350 IU
     Route: 042
  2. KOGENATE FS [Suspect]
     Active Substance: ANTIHEMOPHILIC FACTOR, HUMAN RECOMBINANT
     Dosage: OUTPATIENT PROCEDURE AND USED 1 BLEED DOSE
     Route: 042
     Dates: start: 20201207, end: 20201207

REACTIONS (1)
  - Central venous catheter removal [None]

NARRATIVE: CASE EVENT DATE: 20201207
